FAERS Safety Report 8352867-2 (Version None)
Quarter: 2012Q2

REPORT INFORMATION
  Report Type: 
  Country: None (occurrence: None)
  Receive Date: 20120511
  Receipt Date: 20120430
  Transmission Date: 20120825
  Serious: Yes (Hospitalization, Other)
  Sender: FDA-Public Use
  Company Number: FR-ELI_LILLY_AND_COMPANY-FR201112003446

PATIENT
  Sex: Male

DRUGS (5)
  1. OLANZAPINE [Suspect]
     Indication: SCHIZOPHRENIA
     Dosage: 300 MG, OTHER
     Route: 030
     Dates: start: 20111206, end: 20111206
  2. VALIUM [Concomitant]
     Indication: SCHIZOPHRENIA
     Dosage: UNK
     Route: 048
     Dates: start: 20111126
  3. ZYPREXA [Suspect]
     Dosage: 20 MG, UNK
     Route: 048
  4. DEPAKOTE [Concomitant]
     Indication: SCHIZOAFFECTIVE DISORDER
     Dosage: UNK
     Dates: start: 20111126
  5. ZYPREXA [Suspect]
     Indication: SCHIZOPHRENIA
     Dosage: 20 MG, QD
     Route: 048
     Dates: start: 20040101

REACTIONS (20)
  - CONFUSIONAL STATE [None]
  - AGITATION [None]
  - HALLUCINATION [None]
  - URINARY INCONTINENCE [None]
  - EYE MOVEMENT DISORDER [None]
  - MEDICATION ERROR [None]
  - SUICIDE ATTEMPT [None]
  - DYSARTHRIA [None]
  - AMNESIA [None]
  - PSYCHOMOTOR HYPERACTIVITY [None]
  - SPEECH DISORDER [None]
  - DELIRIUM [None]
  - DYSKINESIA [None]
  - SCHIZOPHRENIA [None]
  - SEDATION [None]
  - ATAXIA [None]
  - DISORIENTATION [None]
  - COGNITIVE DISORDER [None]
  - FATIGUE [None]
  - OVERDOSE [None]
